FAERS Safety Report 25588633 (Version 1)
Quarter: 2025Q3

REPORT INFORMATION
  Report Type: Spontaneous
  Country: US (occurrence: US)
  Receive Date: 20250722
  Receipt Date: 20250722
  Transmission Date: 20251021
  Serious: No
  Sender: JOHNSON AND JOHNSON
  Company Number: US-JNJFOC-20250725490

PATIENT
  Sex: Female

DRUGS (1)
  1. REMICADE [Suspect]
     Active Substance: INFLIXIMAB
     Indication: Crohn^s disease
     Route: 041
     Dates: start: 2018, end: 2023

REACTIONS (4)
  - Staphylococcal infection [Unknown]
  - Alopecia [Unknown]
  - Streptococcal infection [Unknown]
  - Therapeutic product effect decreased [Unknown]
